FAERS Safety Report 12881762 (Version 1)
Quarter: 2016Q4

REPORT INFORMATION
  Report Type: Spontaneous
  Country: US (occurrence: US)
  Receive Date: 20161025
  Receipt Date: 20161025
  Transmission Date: 20170207
  Serious: No
  Sender: FDA-Public Use
  Company Number: US-JNJFOC-20160903532

PATIENT
  Age: 60 Year
  Sex: Male
  Weight: 99.79 kg

DRUGS (1)
  1. STELARA [Suspect]
     Active Substance: USTEKINUMAB
     Indication: PSORIASIS
     Dosage: 90MG/ 4 WEEK BOOSTER THEN EVERY 12 WEEKS.
     Route: 058
     Dates: start: 20160412

REACTIONS (4)
  - Drug dose omission [Unknown]
  - Syringe issue [Recovered/Resolved]
  - Accidental exposure to product [Recovered/Resolved]
  - Device occlusion [Unknown]

NARRATIVE: CASE EVENT DATE: 20160902
